FAERS Safety Report 6143653-2 (Version None)
Quarter: 2009Q2

REPORT INFORMATION
  Report Type: 
  Country: None (occurrence: None)
  Receive Date: 20090403
  Receipt Date: 20090401
  Transmission Date: 20091009
  Serious: Yes (Hospitalization)
  Sender: FDA-Public Use
  Company Number: US-ROXANE LABORATORIES, INC.-2009-RO-00323RO

PATIENT
  Age: 53 Year
  Sex: Female

DRUGS (7)
  1. DEXAMETHASONE [Suspect]
  2. OESTRADIOL [Suspect]
  3. BENDROFLUAZIDE [Suspect]
  4. ATORVASTATIN [Suspect]
  5. BUPIVACAINE [Suspect]
     Indication: ANAESTHESIA
  6. DIAMORPHINE [Suspect]
     Indication: ANAESTHESIA
  7. MIDAZOLAM HCL [Concomitant]
     Indication: MYOCLONUS
     Route: 042

REACTIONS (1)
  - MYOCLONUS [None]
